FAERS Safety Report 13601311 (Version 2)
Quarter: 2017Q3

REPORT INFORMATION
  Report Type: Spontaneous
  Country: FR (occurrence: FR)
  Receive Date: 20170601
  Receipt Date: 20170908
  Transmission Date: 20171127
  Serious: Yes (Other)
  Sender: FDA-Public Use
  Company Number: FR-BRACCO-002647

PATIENT
  Age: 43 Year
  Sex: Male

DRUGS (13)
  1. PANTOPRAZOLE [Concomitant]
     Active Substance: PANTOPRAZOLE
     Dosage: 20 MG, TOTAL
     Route: 048
  2. TARDYFERON [Concomitant]
     Active Substance: FERROUS SULFATE
     Dosage: 3840 MG/DAY
     Route: 048
  3. BICARBONATE ALGINATE [Concomitant]
     Dosage: ONE TO THREE PER DAY
  4. ESCITALOPRAM [Concomitant]
     Active Substance: ESCITALOPRAM OXALATE
     Dosage: 10 MG, QD
     Route: 048
  5. XATRAL LP [Concomitant]
     Active Substance: ALFUZOSIN
     Dosage: 10 MG, QD
     Route: 048
  6. MESTINON [Concomitant]
     Active Substance: PYRIDOSTIGMINE BROMIDE
     Dosage: 120 MG IN THE MORNING, 60 MG MIDDAY AND 120 MG IN  THE EVENING
     Route: 048
  7. PROHANCE [Suspect]
     Active Substance: GADOTERIDOL
     Indication: NUCLEAR MAGNETIC RESONANCE IMAGING
     Dosage: 9 ML, SINGLE
     Route: 042
     Dates: start: 20170330, end: 20170330
  8. MERONEM [Concomitant]
     Active Substance: MEROPENEM
     Indication: SPINAL CORD INFECTION
     Dosage: STOP FORSEEN ON 22-MAY-2017
     Route: 042
     Dates: start: 20170210
  9. AERIUS [Concomitant]
     Active Substance: DESLORATADINE
     Dosage: 5 MG, QD
     Route: 048
  10. ALPRAZOLAM. [Concomitant]
     Active Substance: ALPRAZOLAM
     Dosage: ONE IN THE EVENING
     Route: 048
  11. MOVICOL [Concomitant]
     Active Substance: POLYETHYLENE GLYCOL 3350\POTASSIUM CHLORIDE\SODIUM BICARBONATE\SODIUM CHLORIDE
     Dosage: ONE TO THREE PER DAY
     Route: 048
  12. DALACINE [Suspect]
     Active Substance: CLINDAMYCIN HYDROCHLORIDE
     Indication: SPINAL CORD INFECTION
     Dosage: 600 MG, TID
     Route: 042
     Dates: start: 20170210, end: 20170413
  13. LOVENOX [Concomitant]
     Active Substance: ENOXAPARIN SODIUM
     Dosage: 4000 IU, QD

REACTIONS (3)
  - Dermatitis exfoliative [Recovering/Resolving]
  - Xeroderma [Recovering/Resolving]
  - Eosinophilia [Recovered/Resolved]

NARRATIVE: CASE EVENT DATE: 20170404
